FAERS Safety Report 13344363 (Version 2)
Quarter: 2017Q1

REPORT INFORMATION
  Report Type: Spontaneous
  Country: JP (occurrence: JP)
  Receive Date: 20170317
  Receipt Date: 20170329
  Transmission Date: 20170428
  Serious: Yes (Death, Hospitalization, Other)
  Sender: FDA-Public Use
  Company Number: JP-009507513-1703JPN001122J

PATIENT
  Age: 77 Year
  Sex: Female
  Weight: 43 kg

DRUGS (7)
  1. CANCIDAS [Suspect]
     Active Substance: CASPOFUNGIN ACETATE
     Indication: SYSTEMIC CANDIDA
     Dosage: 70 MG, QD
     Route: 041
     Dates: start: 20141216, end: 20141216
  2. DALACIN [Concomitant]
     Active Substance: CLINDAMYCIN
     Dosage: 600 MG, QID
     Route: 041
  3. HEPARIN [Suspect]
     Active Substance: HEPARIN SODIUM
     Dosage: 200 IU, UNK
     Route: 051
     Dates: start: 20141214, end: 20141223
  4. HEPARIN [Suspect]
     Active Substance: HEPARIN SODIUM
     Indication: DIALYSIS
     Dosage: UNK
     Route: 051
     Dates: start: 20141216, end: 20141222
  5. CANCIDAS [Suspect]
     Active Substance: CASPOFUNGIN ACETATE
     Dosage: 35 MG, QD
     Route: 041
     Dates: start: 20141217, end: 20141222
  6. FOSFLUCONAZOLE [Concomitant]
     Active Substance: FOSFLUCONAZOLE
     Indication: SYSTEMIC CANDIDA
     Dosage: UNK
     Route: 051
     Dates: start: 20141222
  7. MEROPEN [Concomitant]
     Active Substance: MEROPENEM
     Dosage: 1 MG, TID
     Route: 041

REACTIONS (2)
  - Platelet count decreased [Recovered/Resolved]
  - Oesophageal perforation [Fatal]

NARRATIVE: CASE EVENT DATE: 20141217
